FAERS Safety Report 5025759-4 (Version None)
Quarter: 2006Q2

REPORT INFORMATION
  Report Type: 
  Country: None (occurrence: None)
  Receive Date: 20060427
  Receipt Date: 20060206
  Transmission Date: 20061013
  Serious: Yes (Other)
  Sender: FDA-Public Use
  Company Number: 2005172696

PATIENT
  Age: 82 Year
  Sex: Female

DRUGS (4)
  1. ZITHROMAX [Suspect]
     Indication: ASTHMA
     Dates: start: 20050101
  2. AZITHROMYCIN [Suspect]
     Indication: ASTHMA
     Dosage: ORAL
     Route: 048
     Dates: start: 20050101
  3. PREDNISONE TAB [Concomitant]
  4. VALIUM [Concomitant]

REACTIONS (4)
  - DRUG INEFFECTIVE [None]
  - FEELING ABNORMAL [None]
  - HYPERSENSITIVITY [None]
  - PRURITUS [None]
